FAERS Safety Report 18178643 (Version 1)
Quarter: 2020Q3

REPORT INFORMATION
  Report Type: Report from Study
  Country: US (occurrence: US)
  Receive Date: 20200820
  Receipt Date: 20200820
  Transmission Date: 20201103
  Serious: Yes (Other)
  Sender: FDA-Public Use
  Company Number: US-BAUSCH-BL-2020-023113

PATIENT
  Age: 28 Year
  Sex: Female

DRUGS (3)
  1. CARFER [Concomitant]
     Indication: PRODUCT USED FOR UNKNOWN INDICATION
  2. APRISO [Suspect]
     Active Substance: MESALAMINE
     Indication: PRODUCT USED FOR UNKNOWN INDICATION
     Route: 048
     Dates: start: 201908
  3. DOMPERIDONE [Concomitant]
     Active Substance: DOMPERIDONE
     Indication: PRODUCT USED FOR UNKNOWN INDICATION

REACTIONS (25)
  - Impaired gastric emptying [Unknown]
  - Melaena [Unknown]
  - Cough [Unknown]
  - Asthenia [Unknown]
  - Ill-defined disorder [Unknown]
  - Inappropriate schedule of product administration [Unknown]
  - Dysphagia [Unknown]
  - Gastrooesophageal reflux disease [Unknown]
  - Constipation [Not Recovered/Not Resolved]
  - Abdominal pain [Not Recovered/Not Resolved]
  - Enterocolitis [Unknown]
  - Haematochezia [Unknown]
  - Chills [Unknown]
  - Haemoglobin abnormal [Unknown]
  - Dysuria [Unknown]
  - Change of bowel habit [Unknown]
  - Fatigue [Unknown]
  - Pyrexia [Unknown]
  - Oedema [Unknown]
  - Depression [Unknown]
  - Nausea [Unknown]
  - Hiatus hernia [Unknown]
  - Diarrhoea [Unknown]
  - Crohn^s disease [Unknown]
  - Haematemesis [Unknown]

NARRATIVE: CASE EVENT DATE: 201908
